FAERS Safety Report 17684389 (Version 1)
Quarter: 2020Q2

REPORT INFORMATION
  Report Type: Spontaneous
  Country: SE (occurrence: SE)
  Receive Date: 20200420
  Receipt Date: 20200420
  Transmission Date: 20200714
  Serious: Yes (Other)
  Sender: FDA-Public Use
  Company Number: SE-MYLANLABS-2020M1038549

PATIENT
  Age: 33 Year
  Sex: Female

DRUGS (1)
  1. LEDERSPAN [Suspect]
     Active Substance: TRIAMCINOLONE HEXACETONIDE
     Indication: ARTHRITIS
     Dosage: UNK
     Dates: end: 20151205

REACTIONS (2)
  - Scar [Unknown]
  - Muscle rupture [Unknown]

NARRATIVE: CASE EVENT DATE: 20140925
